FAERS Safety Report 23821326 (Version 2)
Quarter: 2024Q2

REPORT INFORMATION
  Report Type: Spontaneous
  Country: US (occurrence: US)
  Receive Date: 20240506
  Receipt Date: 20240507
  Transmission Date: 20240716
  Serious: Yes (Other)
  Sender: FDA-Public Use
  Company Number: US-PFIZER INC-202300296708

PATIENT
  Age: 36 Year
  Sex: Female
  Weight: 113.4 kg

DRUGS (4)
  1. CIBINQO [Suspect]
     Active Substance: ABROCITINIB
     Indication: Dermatitis atopic
     Dosage: 50 MG, DAILY
  2. CIBINQO [Suspect]
     Active Substance: ABROCITINIB
     Indication: Rash erythematous
     Dosage: 100 MG, ALTERNATE DAY
  3. CIBINQO [Suspect]
     Active Substance: ABROCITINIB
     Dosage: TAKE 2 TABLETS A DAY DURING FLARES
  4. CIBINQO [Suspect]
     Active Substance: ABROCITINIB
     Dosage: 50 MG, 2X/DAY

REACTIONS (7)
  - Gastritis erosive [Unknown]
  - Nausea [Recovered/Resolved]
  - Oropharyngeal pain [Recovered/Resolved]
  - Eye disorder [Unknown]
  - Vomiting [Unknown]
  - Ulcer [Unknown]
  - Off label use [Unknown]
